FAERS Safety Report 6269512-2 (Version None)
Quarter: 2009Q3

REPORT INFORMATION
  Report Type: 
  Country: None (occurrence: None)
  Receive Date: 20090715
  Receipt Date: 20090130
  Transmission Date: 20100115
  Serious: No
  Sender: FDA-Public Use
  Company Number: US-TYCO HEALTHCARE/MALLINCKRODT-T200900168

PATIENT
  Age: 44 Year
  Sex: Female

DRUGS (1)
  1. OXYCODONE HCL [Suspect]
     Dosage: 30 MG, UNK

REACTIONS (1)
  - WITHDRAWAL SYNDROME [None]
